FAERS Safety Report 22353341 (Version 1)
Quarter: 2023Q2

REPORT INFORMATION
  Report Type: Spontaneous
  Country: US (occurrence: US)
  Receive Date: 20230523
  Receipt Date: 20230523
  Transmission Date: 20230722
  Serious: No
  Sender: FDA-Public Use
  Company Number: US-CIPLA LTD.-2023US01471

PATIENT

DRUGS (16)
  1. TOPIRAMATE [Suspect]
     Active Substance: TOPIRAMATE
     Indication: Parkinson^s disease
     Dosage: 25 MILLIGRAM, QD (1 TABLET EVERY DAY AT BEDTIME)
     Route: 048
  2. PROLIA [Concomitant]
     Active Substance: DENOSUMAB
     Indication: Osteoporosis
     Dosage: UNK (EVERY 6 MONTHS)
     Route: 065
  3. NIFEDIPINE [Concomitant]
     Active Substance: NIFEDIPINE
     Indication: Hypertension
     Dosage: UNK (90 MILLIGRAMS EVERYDAY)
     Route: 065
  4. CARVEDILOL [Concomitant]
     Active Substance: CARVEDILOL
     Indication: Hypertension
     Dosage: 1.5 DOSAGE FORM, BID (25 MILLIGRAMS/ONE AND HALF TABLET TWICE A DAY)
     Route: 065
  5. ATORVASTATIN [Concomitant]
     Active Substance: ATORVASTATIN
     Indication: Blood cholesterol abnormal
     Dosage: 40 MILLIGRAMS
     Route: 065
  6. AMIODARONE HYDROCHLORIDE [Concomitant]
     Active Substance: AMIODARONE HYDROCHLORIDE
     Indication: Cardiac disorder
     Dosage: 200 MG EVERY DAY
     Route: 065
  7. CALCITRIOL [Concomitant]
     Active Substance: CALCITRIOL
     Indication: Renal disorder
     Dosage: 0.25 MG/ USES ON MONDAY, WEDNESDAY, FRIDAY
     Route: 065
  8. JANUVIA [Concomitant]
     Active Substance: SITAGLIPTIN PHOSPHATE
     Indication: Diabetes mellitus
     Dosage: 50 MILLIGRAMS EVERY DAY
     Route: 065
  9. ELIQUIS [Concomitant]
     Active Substance: APIXABAN
     Indication: Anticoagulant therapy
     Dosage: 2.5 MILLIGRAMS
     Route: 065
  10. LEFLUNOMIDE [Concomitant]
     Active Substance: LEFLUNOMIDE
     Indication: Arthritis
     Dosage: 20 MILLIGRAM, QOD (EVERY OTHER DAY)
     Route: 065
  11. EZETIMIBE [Concomitant]
     Active Substance: EZETIMIBE
     Indication: Blood cholesterol abnormal
     Dosage: 10 MILLIGRAMS EVERYDAY
     Route: 065
  12. LISINOPRIL [Concomitant]
     Active Substance: LISINOPRIL
     Indication: Blood pressure abnormal
     Dosage: 5 MILLIGRAMS EVERYDAY
     Route: 065
  13. CENTRUM SILVER [ASCORBIC ACID;CALCIUM;MINERALS NOS;RETINOL;TOCOPHERYL [Concomitant]
     Indication: Product used for unknown indication
     Dosage: UNK ( USES IT EVERYDAY)
     Route: 065
  14. TYLENOL [Concomitant]
     Active Substance: ACETAMINOPHEN
     Indication: Pain
     Dosage: UNK (65 MILLIGRAMS)
     Route: 065
  15. CALCIUM [Concomitant]
     Active Substance: CALCIUM
     Indication: Product used for unknown indication
     Dosage: UNK
     Route: 065
  16. VITAMIN D3 [Concomitant]
     Active Substance: CHOLECALCIFEROL
     Indication: Product used for unknown indication
     Dosage: 1000 UNITS EVERYDAY
     Route: 065

REACTIONS (1)
  - Off label use [Unknown]
